FAERS Safety Report 10219766 (Version 1)
Quarter: 2014Q2

REPORT INFORMATION
  Report Type: Spontaneous
  Country: TR (occurrence: TR)
  Receive Date: 20140605
  Receipt Date: 20140605
  Transmission Date: 20141212
  Serious: Yes (Other)
  Sender: FDA-Public Use
  Company Number: TR-WATSON-2014-12419

PATIENT
  Age: 9 Month
  Sex: Male
  Weight: 6.5 kg

DRUGS (1)
  1. CYANOCOBALAMIN (UNKNOWN) [Suspect]
     Indication: VITAMIN B12 DEFICIENCY
     Route: 030

REACTIONS (2)
  - Dyskinesia [Recovered/Resolved]
  - Tremor [Recovered/Resolved]
